FAERS Safety Report 11878229 (Version 1)
Quarter: 2015Q4

REPORT INFORMATION
  Report Type: Spontaneous
  Country: US (occurrence: None)
  Receive Date: 20151229
  Receipt Date: 20151229
  Transmission Date: 20160305
  Serious: No
  Sender: FDA-Public Use
  Company Number: None

PATIENT
  Age: 37 Year
  Sex: Female
  Weight: 69.85 kg

DRUGS (1)
  1. COPAXONE [Suspect]
     Active Substance: GLATIRAMER ACETATE
     Indication: MULTIPLE SCLEROSIS
     Route: 058
     Dates: start: 20151111, end: 20151121

REACTIONS (6)
  - Nausea [None]
  - Influenza like illness [None]
  - Fatigue [None]
  - Chills [None]
  - Vomiting [None]
  - Myalgia [None]

NARRATIVE: CASE EVENT DATE: 20151111
